FAERS Safety Report 7649135-0 (Version None)
Quarter: 2011Q3

REPORT INFORMATION
  Report Type: 
  Country: None (occurrence: None)
  Receive Date: 20110802
  Receipt Date: 20110718
  Transmission Date: 20111222
  Serious: Yes (Other)
  Sender: FDA-Public Use
  Company Number: DE-UCBSA-037549

PATIENT
  Age: 68 Year
  Sex: Female

DRUGS (5)
  1. VALPROIC ACID [Suspect]
     Indication: EPILEPSY
     Dosage: 900 UNIT NOT SPECIFIED, 8-9 SEIZURES/MONTH
     Dates: start: 20080201, end: 20080501
  2. LEVETIRACETAM [Suspect]
     Indication: EPILEPSY
  3. LEVETIRACETAM [Suspect]
  4. FRISIUM [Concomitant]
     Indication: EPILEPSY
  5. LEVETIRACETAM [Suspect]

REACTIONS (3)
  - ERYTHEMA [None]
  - CONVULSION [None]
  - CUTANEOUS LUPUS ERYTHEMATOSUS [None]
